FAERS Safety Report 5192145-6 (Version None)
Quarter: 2006Q4

REPORT INFORMATION
  Report Type: 
  Country: None (occurrence: None)
  Receive Date: 20061221
  Receipt Date: 20061221
  Transmission Date: 20070319
  Serious: Yes (Life-Threatening)
  Sender: FDA-Public Use
  Company Number: None

PATIENT
  Sex: Female
  Weight: 49.8957 kg

DRUGS (2)
  1. LEXAPRO [Suspect]
     Indication: DEPRESSION
     Dates: start: 20041001, end: 20050228
  2. . [Concomitant]

REACTIONS (6)
  - ANGER [None]
  - CRYING [None]
  - PERSONALITY CHANGE [None]
  - SOCIAL PROBLEM [None]
  - SUICIDAL IDEATION [None]
  - SUICIDE ATTEMPT [None]
